FAERS Safety Report 18880651 (Version 2)
Quarter: 2021Q1

REPORT INFORMATION
  Report Type: Spontaneous
  Country: BR (occurrence: BR)
  Receive Date: 20210211
  Receipt Date: 20210217
  Transmission Date: 20210420
  Serious: Yes (Other)
  Sender: FDA-Public Use
  Company Number: BR-009507513-2102BRA002106

PATIENT
  Sex: Female
  Weight: 85 kg

DRUGS (1)
  1. IMPLANON NXT [Suspect]
     Active Substance: ETONOGESTREL
     Indication: CONTRACEPTION
     Dosage: 1 IMPLANT
     Route: 058
     Dates: start: 20201106

REACTIONS (3)
  - General physical health deterioration [Not Recovered/Not Resolved]
  - Menorrhagia [Not Recovered/Not Resolved]
  - Blood loss anaemia [Unknown]

NARRATIVE: CASE EVENT DATE: 20201116
